FAERS Safety Report 24395610 (Version 2)
Quarter: 2025Q3

REPORT INFORMATION
  Report Type: Report from Study
  Country: US (occurrence: US)
  Receive Date: 20241004
  Receipt Date: 20250809
  Transmission Date: 20251021
  Serious: Yes (Other)
  Sender: ALEXION PHARMACEUTICALS
  Company Number: US-AstraZeneca-CH-00714324A

PATIENT
  Sex: Female

DRUGS (1)
  1. CALQUENCE [Suspect]
     Active Substance: ACALABRUTINIB
     Dosage: 100 MILLIGRAM, Q12H
     Dates: start: 20231213

REACTIONS (3)
  - Pneumonia [Unknown]
  - Craniofacial fracture [Unknown]
  - Cough [Not Recovered/Not Resolved]
